FAERS Safety Report 24202130 (Version 1)
Quarter: 2024Q3

REPORT INFORMATION
  Report Type: Report from Study
  Country: US (occurrence: US)
  Receive Date: 20240812
  Receipt Date: 20240812
  Transmission Date: 20241017
  Serious: Yes (Other)
  Sender: ABBVIE
  Company Number: US-ABBVIE-5874400

PATIENT
  Sex: Female

DRUGS (1)
  1. HUMIRA [Suspect]
     Active Substance: ADALIMUMAB
     Indication: Rheumatoid arthritis
     Dosage: CITRATE FREE
     Route: 058
     Dates: start: 20140601

REACTIONS (5)
  - Pulmonary hypertension [Unknown]
  - Weight increased [Unknown]
  - Visual impairment [Unknown]
  - Dry mouth [Unknown]
  - Dry eye [Unknown]
